FAERS Safety Report 4970930-0 (Version None)
Quarter: 2006Q2

REPORT INFORMATION
  Report Type: 
  Country: None (occurrence: None)
  Receive Date: 20060412
  Receipt Date: 20060321
  Transmission Date: 20061013
  Serious: Yes (Hospitalization)
  Sender: FDA-Public Use
  Company Number: FR-AVENTIS-200612754GDDC

PATIENT
  Age: 39 Year
  Sex: Male

DRUGS (4)
  1. MINIRIN [Suspect]
     Indication: DIABETES INSIPIDUS
     Dosage: DOSE: UNK
     Route: 045
     Dates: start: 19830101, end: 19940101
  2. MINIRIN [Suspect]
     Route: 045
     Dates: start: 19940101, end: 20041001
  3. MINIRIN [Suspect]
     Route: 045
     Dates: start: 20041001, end: 20041001
  4. MINIRIN [Suspect]
     Route: 045
     Dates: start: 20041001, end: 20041201

REACTIONS (4)
  - HYPONATRAEMIA [None]
  - OVERDOSE [None]
  - PERSECUTORY DELUSION [None]
  - WATER INTOXICATION [None]
